FAERS Safety Report 6657022-X (Version None)
Quarter: 2010Q1

REPORT INFORMATION
  Report Type: 
  Country: None (occurrence: None)
  Receive Date: 20100329
  Receipt Date: 20100329
  Transmission Date: 20100710
  Serious: Yes (Hospitalization)
  Sender: FDA-Public Use
  Company Number: None

PATIENT
  Age: 80 Year
  Sex: Male
  Weight: 77.7 kg

DRUGS (9)
  1. RISPERIDONE [Suspect]
     Indication: DEMENTIA
     Dosage: 0.5MG PO BID 0.25 MG PO QHS
     Route: 048
     Dates: start: 20090701, end: 20091028
  2. RISPERIDONE [Suspect]
     Indication: DEMENTIA
     Dosage: 0.5MG PO BID 0.25 MG PO QHS
     Route: 048
     Dates: start: 20091028
  3. BENAZEPRIL HYDROCHLORIDE [Concomitant]
  4. DONEPEZIL HCL [Concomitant]
  5. LASIX [Concomitant]
  6. MEMANTINE HCL [Suspect]
  7. POTASSIUM CHLORIDE [Concomitant]
  8. TRAZODONE HCL [Concomitant]
  9. UNKNOWN [Concomitant]

REACTIONS (1)
  - AGITATION [None]
